FAERS Safety Report 8082464-8 (Version None)
Quarter: 2012Q1

REPORT INFORMATION
  Report Type: 
  Country: None (occurrence: None)
  Receive Date: 20120127
  Receipt Date: 20110220
  Transmission Date: 20120608
  Serious: No
  Sender: FDA-Public Use
  Company Number: US-ABBOTT-11P-163-0706475-00

PATIENT
  Age: 49 Year
  Sex: Female

DRUGS (4)
  1. SYNTHROID [Concomitant]
     Indication: THYROID DISORDER
  2. TRAZODONE HCL [Concomitant]
     Indication: INSOMNIA
  3. HUMIRA [Suspect]
     Indication: CROHN'S DISEASE
     Dates: start: 20101208
  4. LOMOTIL [Concomitant]
     Indication: DIARRHOEA

REACTIONS (1)
  - INJECTION SITE HAEMATOMA [None]
